FAERS Safety Report 11378193 (Version 1)
Quarter: 2015Q3

REPORT INFORMATION
  Report Type: Spontaneous
  Country: US (occurrence: US)
  Receive Date: 20150811
  Receipt Date: 20150811
  Transmission Date: 20151125
  Serious: Yes (Hospitalization)
  Sender: FDA-Public Use
  Company Number: US-ELI_LILLY_AND_COMPANY-US201205005140

PATIENT
  Age: 45 Year
  Sex: Female
  Weight: 58.96 kg

DRUGS (3)
  1. REMODULIN [Concomitant]
     Active Substance: TREPROSTINIL
     Indication: COR PULMONALE CHRONIC
     Dosage: 90 DF, OTHER
     Route: 058
     Dates: start: 20120425
  2. LETAIRIS [Concomitant]
     Active Substance: AMBRISENTAN
  3. ADCIRCA [Suspect]
     Active Substance: TADALAFIL

REACTIONS (1)
  - Headache [Unknown]

NARRATIVE: CASE EVENT DATE: 20120510
